FAERS Safety Report 15210463 (Version 1)
Quarter: 2018Q3

REPORT INFORMATION
  Report Type: Spontaneous
  Country: US (occurrence: US)
  Receive Date: 20180629
  Receipt Date: 20180629
  Transmission Date: 20181010
  Serious: Yes (Hospitalization)
  Sender: FDA-Public Use
  Company Number: None

PATIENT
  Age: 15 Year
  Sex: Female
  Weight: 38.8 kg

DRUGS (6)
  1. CEFDINIR SUS 250/5ML [Concomitant]
     Dates: start: 20180306
  2. NORDITROPIN [Suspect]
     Active Substance: SOMATROPIN
     Indication: HYPOPITUITARISM
     Route: 058
     Dates: start: 20180105
  3. HYDROCODONE/APAP SOL 7.5?325 [Concomitant]
     Active Substance: ACETAMINOPHEN\HYDROCODONE
     Dates: start: 20180621
  4. SF 5000 PLUS CRE 1.1% [Concomitant]
     Dates: start: 20180524
  5. HYDROCODONE/APAP TAB 7.5?325 [Concomitant]
     Dates: start: 20180621
  6. ALBENZA TAB 200MG [Concomitant]
     Dates: start: 20180416

REACTIONS (1)
  - Drug dose omission [None]

NARRATIVE: CASE EVENT DATE: 20180617
